FAERS Safety Report 20566445 (Version 2)
Quarter: 2022Q1

REPORT INFORMATION
  Report Type: Spontaneous
  Country: US (occurrence: US)
  Receive Date: 20220308
  Receipt Date: 20220311
  Transmission Date: 20220423
  Serious: Yes (Other)
  Sender: FDA-Public Use
  Company Number: US-MLMSERVICE-20220216-3378146-1

PATIENT
  Age: 77 Year
  Sex: Male
  Weight: 85.3 kg

DRUGS (8)
  1. GEMCITABINE HYDROCHLORIDE [Suspect]
     Active Substance: GEMCITABINE HYDROCHLORIDE
     Indication: Cholangiocarcinoma
     Dosage: DOSE REDUCTIONS
  2. GEMCITABINE HYDROCHLORIDE [Suspect]
     Active Substance: GEMCITABINE HYDROCHLORIDE
     Dosage: UNK UNK, CYCLIC
     Dates: start: 202005
  3. GEMCITABINE HYDROCHLORIDE [Suspect]
     Active Substance: GEMCITABINE HYDROCHLORIDE
     Dosage: 800 MG/M2 ON DAYS 1 AND 8 OF 21-DAY CYCLE
     Dates: start: 201912
  4. ABRAXANE [Suspect]
     Active Substance: PACLITAXEL
     Indication: Cholangiocarcinoma
     Dosage: 100 MG/M2 ON DAYS 1 AND 8 OF 21-DAY CYCLE
     Dates: start: 201912
  5. ABRAXANE [Suspect]
     Active Substance: PACLITAXEL
     Dosage: DOSE REDUCTIONS
  6. CISPLATIN [Suspect]
     Active Substance: CISPLATIN
     Indication: Cholangiocarcinoma
     Dosage: 25 MG/M2 ON DAYS 1 AND 8 OF 21-DAY CYCLE
     Dates: start: 201912
  7. CISPLATIN [Suspect]
     Active Substance: CISPLATIN
     Dosage: DOSE REDUCTIONS
  8. CISPLATIN [Suspect]
     Active Substance: CISPLATIN
     Dosage: UNK UNK, CYCLIC
     Dates: start: 202005

REACTIONS (2)
  - Thrombocytopenia [Recovered/Resolved]
  - Fatigue [Recovered/Resolved]

NARRATIVE: CASE EVENT DATE: 20200311
